FAERS Safety Report 11280532 (Version 2)
Quarter: 2015Q4

REPORT INFORMATION
  Report Type: Spontaneous
  Country: US (occurrence: US)
  Receive Date: 20150717
  Receipt Date: 20151111
  Transmission Date: 20160304
  Serious: No
  Sender: FDA-Public Use
  Company Number: US-JNJFOC-20150512235

PATIENT
  Sex: Female
  Weight: 85.73 kg

DRUGS (7)
  1. THYROXINE [Concomitant]
     Active Substance: LEVOTHYROXINE
     Indication: HYPOTHYROIDISM
     Route: 065
  2. AMLODIPINE [Concomitant]
     Active Substance: AMLODIPINE BESYLATE
     Indication: HYPERTENSION
     Route: 065
  3. XARELTO [Suspect]
     Active Substance: RIVAROXABAN
     Indication: DEEP VEIN THROMBOSIS
     Route: 048
     Dates: start: 201311, end: 201406
  4. METOPROLOL [Concomitant]
     Active Substance: METOPROLOL
     Indication: HYPERTENSION
     Route: 065
  5. DIOVAN [Concomitant]
     Active Substance: VALSARTAN
     Indication: HYPERTENSION
     Route: 065
  6. XARELTO [Suspect]
     Active Substance: RIVAROXABAN
     Indication: INTRACRANIAL VENOUS SINUS THROMBOSIS
     Route: 048
     Dates: start: 201311, end: 201406
  7. FOLIC ACID. [Concomitant]
     Active Substance: FOLIC ACID
     Indication: HYPERCOAGULATION
     Route: 065

REACTIONS (2)
  - Off label use [Unknown]
  - Hypertonic bladder [Recovered/Resolved]

NARRATIVE: CASE EVENT DATE: 2013
